FAERS Safety Report 10514118 (Version 1)
Quarter: 2014Q4

REPORT INFORMATION
  Report Type: Report from Study
  Country: BR (occurrence: BR)
  Receive Date: 20141013
  Receipt Date: 20141013
  Transmission Date: 20150528
  Serious: Yes (Hospitalization, Disabling, Other)
  Sender: FDA-Public Use
  Company Number: BR-ABBVIE-14K-020-1292375-00

PATIENT
  Age: 39 Year
  Sex: Female
  Weight: 80 kg

DRUGS (2)
  1. HUMIRA [Suspect]
     Active Substance: ADALIMUMAB
     Indication: RHEUMATOID ARTHRITIS
     Route: 058
     Dates: start: 20091024, end: 20101001
  2. PRELONE [Concomitant]
     Active Substance: PREDNISOLONE
     Indication: PRODUCT USED FOR UNKNOWN INDICATION
     Dates: start: 2009

REACTIONS (22)
  - Asthenia [Not Recovered/Not Resolved]
  - Cerebral atrophy [Unknown]
  - Insomnia [Recovered/Resolved]
  - Seizure [Recovered/Resolved]
  - Loss of consciousness [Recovered/Resolved]
  - Seizure [Recovered/Resolved]
  - White blood cell count increased [Unknown]
  - Dyspnoea [Recovered/Resolved]
  - Hepatic steatosis [Not Recovered/Not Resolved]
  - Arthralgia [Not Recovered/Not Resolved]
  - Activities of daily living impaired [Not Recovered/Not Resolved]
  - Drug ineffective [Not Recovered/Not Resolved]
  - C-reactive protein increased [Unknown]
  - Jaw disorder [Recovered/Resolved]
  - Obsessive-compulsive disorder [Not Recovered/Not Resolved]
  - Depression [Not Recovered/Not Resolved]
  - Immunodeficiency [Not Recovered/Not Resolved]
  - Bedridden [Not Recovered/Not Resolved]
  - Swelling [Unknown]
  - Hypophagia [Recovered/Resolved]
  - Tongue biting [Recovered/Resolved]
  - Pulmonary granuloma [Not Recovered/Not Resolved]

NARRATIVE: CASE EVENT DATE: 201310
